FAERS Safety Report 7163576-X (Version None)
Quarter: 2010Q4

REPORT INFORMATION
  Report Type: 
  Country: None (occurrence: None)
  Receive Date: 20101215
  Receipt Date: 20100513
  Transmission Date: 20110411
  Serious: Yes (Other)
  Sender: FDA-Public Use
  Company Number: US-PFIZER INC-2010039695

PATIENT
  Sex: Female

DRUGS (2)
  1. LYRICA [Suspect]
     Indication: TRIGEMINAL NEURALGIA
     Dosage: 75 MG, 3X/DAY
     Route: 048
     Dates: start: 20090901
  2. METFORMIN HCL [Interacting]
     Indication: DIABETES MELLITUS
     Dosage: UNK

REACTIONS (7)
  - BURNING SENSATION [None]
  - DRUG INTERACTION [None]
  - HYPOAESTHESIA [None]
  - LIP SWELLING [None]
  - OEDEMA MOUTH [None]
  - PHARYNGEAL OEDEMA [None]
  - SWOLLEN TONGUE [None]
